FAERS Safety Report 16993655 (Version 6)
Quarter: 2021Q3

REPORT INFORMATION
  Report Type: Report from Study
  Country: CN (occurrence: CN)
  Receive Date: 20191105
  Receipt Date: 20210920
  Transmission Date: 20211014
  Serious: Yes (Hospitalization)
  Sender: FDA-Public Use
  Company Number: CN-GLAXOSMITHKLINE-CN2019TSO198851

PATIENT
  Age: 53 Year
  Sex: Female
  Weight: 43 kg

DRUGS (11)
  1. NIRAPARIB [Suspect]
     Active Substance: NIRAPARIB
     Dosage: 100 MG, QD
     Dates: start: 20191020, end: 20191024
  2. NIRAPARIB [Suspect]
     Active Substance: NIRAPARIB
     Dosage: 100 MG, QD
     Dates: start: 20191025, end: 20191124
  3. BIFIDOBACTERIUM TRIPLE VIABLE CAPSULE [Concomitant]
     Indication: DYSPEPSIA
  4. NIRAPARIB [Suspect]
     Active Substance: NIRAPARIB
     Dosage: 100 MG, QD
     Dates: start: 20191006, end: 20191007
  5. LEVOFLOXACIN INJECTION [Concomitant]
     Active Substance: LEVOFLOXACIN
     Indication: EPILEPSY
     Dosage: 250 ML, QD
     Route: 042
     Dates: start: 20191123, end: 201911
  6. HEPATOCYTE GROWTH?PROMOTING FACTOR [Concomitant]
     Indication: DRUG THERAPY
     Dosage: 80 MG, QD
     Route: 042
     Dates: start: 20191123, end: 20191127
  7. BIFIDOBACTERIUM TRIPLE VIABLE CAPSULE [Concomitant]
     Indication: CONSTIPATION
     Dosage: 0.63 G, BID
     Route: 048
     Dates: start: 20191123, end: 201911
  8. NIRAPARIB [Suspect]
     Active Substance: NIRAPARIB
     Dosage: 100 MG, QD
     Dates: start: 20190612, end: 20190927
  9. NIRAPARIB [Suspect]
     Active Substance: NIRAPARIB
     Indication: OVARIAN CANCER
     Dosage: 200 MG, QD
     Dates: start: 20190515, end: 20190528
  10. NIRAPARIB [Suspect]
     Active Substance: NIRAPARIB
     Dosage: UNK
     Dates: end: 20191125
  11. XIANG DAN (TRADITIONAL CHINESE MEDICINE) [Concomitant]
     Indication: CARDIOVASCULAR EVENT PROPHYLAXIS
     Dosage: 20 ML, QD
     Route: 042
     Dates: start: 20191123

REACTIONS (1)
  - Ileus [Recovered/Resolved]

NARRATIVE: CASE EVENT DATE: 20190928
